APPROVED DRUG PRODUCT: NATEGLINIDE
Active Ingredient: NATEGLINIDE
Strength: 60MG
Dosage Form/Route: TABLET;ORAL
Application: A077462 | Product #001 | TE Code: AB
Applicant: WATSON LABORATORIES INC
Approved: Mar 30, 2011 | RLD: No | RS: No | Type: RX